FAERS Safety Report 18273437 (Version 2)
Quarter: 2020Q4

REPORT INFORMATION
  Report Type: Spontaneous
  Country: US (occurrence: US)
  Receive Date: 20200916
  Receipt Date: 20201110
  Transmission Date: 20210113
  Serious: Yes (Death, Other)
  Sender: FDA-Public Use
  Company Number: US-ALEXION-A202013367

PATIENT
  Age: 58 Year
  Sex: Male
  Weight: 72.58 kg

DRUGS (2)
  1. SOLIRIS [Suspect]
     Active Substance: ECULIZUMAB
     Indication: ATYPICAL HAEMOLYTIC URAEMIC SYNDROME
     Dosage: 900 MG, QW
     Route: 042
     Dates: start: 20200527, end: 20200617
  2. SOLIRIS [Suspect]
     Active Substance: ECULIZUMAB
     Dosage: 1200 MG, Q2W
     Route: 042
     Dates: start: 20200624, end: 20200806

REACTIONS (2)
  - Laboratory test abnormal [Unknown]
  - Malignant neoplasm of ampulla of Vater [Fatal]

NARRATIVE: CASE EVENT DATE: 20200622
